FAERS Safety Report 10132154 (Version 1)
Quarter: 2014Q2

REPORT INFORMATION
  Report Type: Report from Study
  Country: US (occurrence: US)
  Receive Date: 20140428
  Receipt Date: 20140428
  Transmission Date: 20141212
  Serious: Yes (Other)
  Sender: FDA-Public Use
  Company Number: US-JNJFOC-20140416365

PATIENT
  Age: 79 Year
  Sex: Male
  Weight: 87.32 kg

DRUGS (7)
  1. REMICADE [Suspect]
     Indication: COLITIS ULCERATIVE
     Dosage: 2 MONTHS
     Route: 042
  2. REMICADE [Suspect]
     Indication: COLITIS ULCERATIVE
     Route: 042
     Dates: start: 20140422
  3. DILTIAZEM [Concomitant]
     Indication: CARDIAC DISORDER
     Route: 048
     Dates: start: 201306
  4. KEPPRA [Concomitant]
     Indication: CONVULSION
     Route: 048
     Dates: start: 201311
  5. LISINOPRIL [Concomitant]
     Indication: CARDIAC DISORDER
     Route: 048
     Dates: start: 201306
  6. MERCAPTOPURINE [Concomitant]
     Indication: COLITIS
     Route: 048
  7. LIALDA [Concomitant]
     Indication: COLITIS
     Route: 048

REACTIONS (1)
  - Cardiac valve disease [Unknown]
